FAERS Safety Report 8623290-8 (Version None)
Quarter: 2012Q3

REPORT INFORMATION
  Report Type: 
  Country: None (occurrence: None)
  Receive Date: 20120827
  Receipt Date: 20120814
  Transmission Date: 20120928
  Serious: Yes (Hospitalization, Other)
  Sender: FDA-Public Use
  Company Number: JP-VERTEX PHARMACEUTICAL INC.-AE-2012-002822

PATIENT
  Age: 59 Year
  Sex: Male

DRUGS (14)
  1. VX-950 [Suspect]
     Dosage: 1000 MG, QD
     Route: 048
     Dates: start: 20120228, end: 20120301
  2. REBETOL [Concomitant]
     Dosage: 800 MG, QD
     Route: 048
     Dates: start: 20120221
  3. REBETOL [Concomitant]
     Dosage: 400 MG, QD
     Route: 048
     Dates: end: 20120430
  4. VX-950 [Suspect]
     Indication: HEPATITIS C
     Dosage: 2250 MG, QD
     Route: 048
     Dates: start: 20120214, end: 20120217
  5. VX-950 [Suspect]
     Dosage: 2000 MG, QD
     Route: 048
     Dates: start: 20120417
  6. REBETOL [Concomitant]
     Dosage: 800 MG, QD
     Route: 048
     Dates: start: 20120214, end: 20120217
  7. ALLOPURINOL [Concomitant]
     Dosage: 200 MG, QD
     Route: 048
     Dates: end: 20120508
  8. PEGINTRON                          /01543001/ [Concomitant]
     Dosage: 1.5 UNK, UNK
     Route: 058
     Dates: start: 20120221
  9. VX-950 [Suspect]
     Dosage: 1500 MG, QD
     Route: 048
     Dates: start: 20120302, end: 20120416
  10. PEGINTRON                          /01543001/ [Concomitant]
     Dosage: 1.5 UNK, UNK
     Route: 058
     Dates: start: 20120214, end: 20120217
  11. REBETOL [Concomitant]
     Dosage: 800 MG, QD
     Route: 048
     Dates: start: 20120605
  12. CELESTAMINE TAB [Concomitant]
     Dosage: 3 DF, UNK
     Route: 048
     Dates: end: 20120403
  13. REBETOL [Concomitant]
     Dosage: 600 MG, QD
     Route: 048
     Dates: start: 20120501, end: 20120604
  14. JANUVIA [Concomitant]
     Dosage: 50 MG, QD
     Route: 048

REACTIONS (2)
  - HYPERURICAEMIA [None]
  - RENAL FAILURE ACUTE [None]
